FAERS Safety Report 23818997 (Version 1)
Quarter: 2024Q2

REPORT INFORMATION
  Report Type: Spontaneous
  Country: US (occurrence: US)
  Receive Date: 20240506
  Receipt Date: 20240506
  Transmission Date: 20240716
  Serious: Yes (Other)
  Sender: FDA-Public Use
  Company Number: US-IMMUNOCORE, LTD.-2024-IMC-002510

PATIENT

DRUGS (1)
  1. KIMMTRAK [Suspect]
     Active Substance: TEBENTAFUSP-TEBN
     Indication: Product used for unknown indication
     Dosage: UNK

REACTIONS (6)
  - Cytokine release syndrome [Unknown]
  - Blood pressure decreased [Unknown]
  - Pyrexia [Unknown]
  - Hair colour changes [Unknown]
  - Eyelash discolouration [Unknown]
  - Skin discolouration [Unknown]
